FAERS Safety Report 20587402 (Version 2)
Quarter: 2022Q1

REPORT INFORMATION
  Report Type: Report from Study
  Country: MX (occurrence: MX)
  Receive Date: 20220314
  Receipt Date: 20220317
  Transmission Date: 20220424
  Serious: Yes (Other)
  Sender: FDA-Public Use
  Company Number: MX-NOVARTISPH-NVSC2022MX057909

PATIENT
  Sex: Female
  Weight: 95 kg

DRUGS (2)
  1. EXFORGE HCT [Suspect]
     Active Substance: AMLODIPINE BESYLATE\HYDROCHLOROTHIAZIDE\VALSARTAN
     Indication: Blood pressure abnormal
     Dosage: 1 DOSAGE FORM, QD (STRENGTH: 25/320 MG ALSO MENTIONED 10/320/25 MG)
     Route: 048
     Dates: start: 2013, end: 2017
  2. ELIQUIS [Concomitant]
     Active Substance: APIXABAN
     Indication: Ill-defined disorder
     Dosage: 1 DOSAGE FORM, QD (5 MG)
     Route: 048

REACTIONS (3)
  - Thrombosis [Recovered/Resolved]
  - Asphyxia [Unknown]
  - Pain in extremity [Unknown]

NARRATIVE: CASE EVENT DATE: 20160101
